FAERS Safety Report 8305898-2 (Version None)
Quarter: 2012Q2

REPORT INFORMATION
  Report Type: 
  Country: None (occurrence: None)
  Receive Date: 20120423
  Receipt Date: 20110711
  Transmission Date: 20120825
  Serious: No
  Sender: FDA-Public Use
  Company Number: US-BAUSCH-2011BL004626

PATIENT
  Age: 91 Year
  Sex: Female

DRUGS (5)
  1. PLAVIX [Concomitant]
  2. ATENOLOL [Concomitant]
  3. FUROSEMIDE [Concomitant]
  4. LEVOBUNOLOL HYDROCHLORIDE [Suspect]
     Indication: GLAUCOMA
     Route: 047
     Dates: start: 20110707, end: 20110707
  5. AMLODIPINE [Concomitant]

REACTIONS (2)
  - EYE PAIN [None]
  - CONDITION AGGRAVATED [None]
